FAERS Safety Report 8421572-6 (Version None)
Quarter: 2012Q2

REPORT INFORMATION
  Report Type: 
  Country: None (occurrence: None)
  Receive Date: 20120601
  Receipt Date: 20120502
  Transmission Date: 20120825
  Serious: Yes (Life-Threatening)
  Sender: FDA-Public Use
  Company Number: PI-07170

PATIENT
  Age: 62 Year
  Sex: Male

DRUGS (4)
  1. PREMEDICATION (LORAZEPAM, BISOPROLOL, OXYGEN) [Concomitant]
  2. ANAESTHESIA (MIDAZOLAM, PROPOFOL, ALFENTANIL, ROCURONIUM) [Concomitant]
  3. CHLORAPREP [Suspect]
     Indication: PREOPERATIVE CARE
     Dosage: 3ML, ONCE, TOPICAL
     Route: 061
     Dates: start: 20120310
  4. CHLORAPREP [Suspect]
     Indication: PREOPERATIVE CARE
     Dosage: 5ML, ONCE, TOPICAL
     Route: 061
     Dates: start: 20120310

REACTIONS (3)
  - SCRATCH [None]
  - ANAPHYLACTIC REACTION [None]
  - NO THERAPEUTIC RESPONSE [None]
